FAERS Safety Report 7821826-8 (Version None)
Quarter: 2011Q4

REPORT INFORMATION
  Report Type: 
  Country: None (occurrence: None)
  Receive Date: 20111018
  Receipt Date: 20110119
  Transmission Date: 20120403
  Serious: No
  Sender: FDA-Public Use
  Company Number: US-ASTRAZENECA-2011SE03501

PATIENT
  Age: 57 Year
  Sex: Female
  Weight: 81.6 kg

DRUGS (2)
  1. SYMBICORT [Suspect]
     Indication: ASTHMA
     Dosage: 160 MCG BID
     Route: 055
  2. ALBUTEROL [Concomitant]
     Indication: ASTHMA

REACTIONS (4)
  - DYSPNOEA [None]
  - OROPHARYNGEAL PAIN [None]
  - ORAL MUCOSAL DISCOLOURATION [None]
  - INCORRECT DOSE ADMINISTERED [None]
